FAERS Safety Report 20692420 (Version 1)
Quarter: 2022Q2

REPORT INFORMATION
  Report Type: Spontaneous
  Country: US (occurrence: US)
  Receive Date: 20220409
  Receipt Date: 20220409
  Transmission Date: 20220721
  Serious: Yes (Other)
  Sender: FDA-Public Use
  Company Number: US-BRISTOL-MYERS SQUIBB COMPANY-2022-015060

PATIENT
  Age: 48 Year
  Sex: Male
  Weight: 70.306 kg

DRUGS (1)
  1. REVLIMID [Suspect]
     Active Substance: LENALIDOMIDE
     Indication: Plasma cell myeloma in remission
     Dosage: DAY 1-21, 28 DAYS CYCLE
     Route: 048

REACTIONS (1)
  - Thrombosis [Recovered/Resolved with Sequelae]
